FAERS Safety Report 12068950 (Version 2)
Quarter: 2016Q1

REPORT INFORMATION
  Report Type: Spontaneous
  Country: US (occurrence: US)
  Receive Date: 20160211
  Receipt Date: 20160317
  Transmission Date: 20160526
  Serious: No
  Sender: FDA-Public Use
  Company Number: US-TEVA-627099ACC

PATIENT
  Age: 3 Decade
  Sex: Female
  Weight: 49.94 kg

DRUGS (1)
  1. AFTERA [Suspect]
     Active Substance: LEVONORGESTREL
     Indication: POST COITAL CONTRACEPTION

REACTIONS (9)
  - Thirst [Unknown]
  - Feeling hot [Not Recovered/Not Resolved]
  - Rash [Not Recovered/Not Resolved]
  - Dehydration [Unknown]
  - Dyspepsia [Unknown]
  - Pruritus [Unknown]
  - Diarrhoea [Unknown]
  - Inflammation [Not Recovered/Not Resolved]
  - Urticaria [Unknown]

NARRATIVE: CASE EVENT DATE: 201512
